FAERS Safety Report 12140169 (Version 1)
Quarter: 2016Q1

REPORT INFORMATION
  Report Type: Spontaneous
  Country: US (occurrence: None)
  Receive Date: 20160302
  Receipt Date: 20160302
  Transmission Date: 20160526
  Serious: No
  Sender: FDA-Public Use
  Company Number: None

PATIENT
  Age: 60 Year
  Sex: Male
  Weight: 104.33 kg

DRUGS (6)
  1. SIMVASTATIN. [Concomitant]
     Active Substance: SIMVASTATIN
  2. LISINOPRIL. [Concomitant]
     Active Substance: LISINOPRIL
  3. DULOXETINE HCL [Concomitant]
     Active Substance: DULOXETINE HYDROCHLORIDE
  4. OMEPRAZOLE. [Concomitant]
     Active Substance: OMEPRAZOLE
  5. CALCIUM WITH VIT D [Concomitant]
  6. DENOSUMAB 60MG/ML [Suspect]
     Active Substance: DENOSUMAB
     Indication: OSTEOPOROSIS
     Dosage: 1 INJECTION 6 MONTHS INTO THE MUSCLE
     Route: 030

REACTIONS (6)
  - Abdominal discomfort [None]
  - Fatigue [None]
  - Asthenia [None]
  - Arthralgia [None]
  - Condition aggravated [None]
  - Gait disturbance [None]

NARRATIVE: CASE EVENT DATE: 20160301
